FAERS Safety Report 12727114 (Version 2)
Quarter: 2017Q1

REPORT INFORMATION
  Report Type: Spontaneous
  Country: US (occurrence: US)
  Receive Date: 20160909
  Receipt Date: 20170328
  Transmission Date: 20170428
  Serious: No
  Sender: FDA-Public Use
  Company Number: US-TEVA-686266ACC

PATIENT
  Age: 17 Year
  Sex: Female
  Weight: 50.85 kg

DRUGS (4)
  1. OMEPRAZOLE. [Concomitant]
     Active Substance: OMEPRAZOLE
  2. PARAGARD T 380A [Suspect]
     Active Substance: COPPER
     Indication: CONTRACEPTION
     Dates: start: 20150121, end: 20160525
  3. LORATADINE. [Concomitant]
     Active Substance: LORATADINE
  4. EPIPEN [Concomitant]
     Active Substance: EPINEPHRINE

REACTIONS (7)
  - Device expulsion [Recovered/Resolved]
  - Fatigue [Unknown]
  - Dyspareunia [Recovered/Resolved]
  - Dysmenorrhoea [Unknown]
  - Nausea [Unknown]
  - Pelvic pain [Recovered/Resolved]
  - Back pain [Unknown]

NARRATIVE: CASE EVENT DATE: 20160525
